FAERS Safety Report 18608711 (Version 1)
Quarter: 2020Q4

REPORT INFORMATION
  Report Type: Spontaneous
  Country: US (occurrence: US)
  Receive Date: 20201213
  Receipt Date: 20201213
  Transmission Date: 20210114
  Serious: No
  Sender: FDA-Public Use
  Company Number: US-ELI_LILLY_AND_COMPANY-US202011007728

PATIENT
  Sex: Female

DRUGS (2)
  1. METFORMIN [Concomitant]
     Active Substance: METFORMIN HYDROCHLORIDE
     Indication: TYPE 1 DIABETES MELLITUS
  2. HUMALOG KWIKPEN [Suspect]
     Active Substance: INSULIN LISPRO
     Indication: TYPE 1 DIABETES MELLITUS
     Dosage: 21 U, PRN
     Route: 058

REACTIONS (4)
  - Blood glucose increased [Recovered/Resolved]
  - Urinary tract infection [Recovered/Resolved]
  - Diarrhoea [Recovered/Resolved]
  - Incontinence [Not Recovered/Not Resolved]

NARRATIVE: CASE EVENT DATE: 2020
